FAERS Safety Report 7429816-4 (Version None)
Quarter: 2011Q2

REPORT INFORMATION
  Report Type: 
  Country: None (occurrence: None)
  Receive Date: 20110421
  Receipt Date: 20110412
  Transmission Date: 20111010
  Serious: Yes (Hospitalization)
  Sender: FDA-Public Use
  Company Number: US-JNJFOC-20110405744

PATIENT
  Sex: Female
  Weight: 58.06 kg

DRUGS (3)
  1. DURAGESIC [Suspect]
     Route: 062
  2. DURAGESIC [Suspect]
     Indication: DISLOCATION OF VERTEBRA
     Route: 062
  3. DURAGESIC [Suspect]
     Route: 062

REACTIONS (3)
  - WITHDRAWAL SYNDROME [None]
  - INADEQUATE ANALGESIA [None]
  - CHEST X-RAY ABNORMAL [None]
